FAERS Safety Report 8854852 (Version 2)
Quarter: 2012Q4

REPORT INFORMATION
  Report Type: 
  Country: US (occurrence: US)
  Receive Date: 20121023
  Receipt Date: 20121128
  Transmission Date: 20130627
  Serious: No
  Sender: FDA-Public Use
  Company Number: US-PFIZER INC-2012260644

PATIENT
  Age: 60 Year
  Sex: Male

DRUGS (2)
  1. LYRICA [Suspect]
     Dosage: 150 (no units provided), TID
  2. PREGABALIN [Suspect]
     Dosage: 150 mg, 3x/day
     Route: 048
     Dates: start: 20121115

REACTIONS (1)
  - Feeling abnormal [Unknown]
